FAERS Safety Report 5558162-9 (Version None)
Quarter: 2007Q4

REPORT INFORMATION
  Report Type: 
  Country: None (occurrence: None)
  Receive Date: 20071214
  Receipt Date: 20071203
  Transmission Date: 20080405
  Serious: Yes (Hospitalization, Other)
  Sender: FDA-Public Use
  Company Number: IE-PFIZER INC-2007088693

PATIENT
  Sex: Male
  Weight: 87 kg

DRUGS (7)
  1. VFEND [Suspect]
     Indication: FUNGAL INFECTION
     Route: 048
     Dates: start: 20071015, end: 20071017
  2. VALTREX [Concomitant]
     Route: 048
     Dates: start: 20071012, end: 20071015
  3. TAZOCIN [Concomitant]
     Route: 042
     Dates: start: 20071012, end: 20071015
  4. GENTAMICIN [Concomitant]
     Indication: PYREXIA
     Route: 042
     Dates: start: 20071012, end: 20071015
  5. TEICOPLANIN [Concomitant]
     Dosage: DAILY DOSE:400MG
     Route: 042
     Dates: start: 20071014, end: 20071021
  6. CIPROXIN [Concomitant]
     Route: 048
     Dates: start: 20071012, end: 20071021
  7. CLADRIBINE [Concomitant]

REACTIONS (2)
  - HALLUCINATION, AUDITORY [None]
  - HALLUCINATION, VISUAL [None]
